FAERS Safety Report 21394883 (Version 1)
Quarter: 2022Q3

REPORT INFORMATION
  Report Type: Spontaneous
  Country: US (occurrence: US)
  Receive Date: 20220930
  Receipt Date: 20220930
  Transmission Date: 20221027
  Serious: No
  Sender: FDA-Public Use
  Company Number: US-LEO Pharma-345604

PATIENT
  Age: 65 Year
  Sex: Female

DRUGS (1)
  1. ADBRY [Suspect]
     Active Substance: TRALOKINUMAB-LDRM
     Indication: Eczema

REACTIONS (4)
  - Cheilitis [Recovered/Resolved]
  - Eyelid rash [Recovered/Resolved]
  - Rash [Recovered/Resolved]
  - Rash [Not Recovered/Not Resolved]
